FAERS Safety Report 14876061 (Version 7)
Quarter: 2022Q1

REPORT INFORMATION
  Report Type: Report from Study
  Country: US (occurrence: None)
  Receive Date: 20180510
  Receipt Date: 20220124
  Transmission Date: 20220424
  Serious: Yes (Other)
  Sender: FDA-Public Use
  Company Number: US-MERCK KGAA-E2B_90041447

PATIENT
  Age: 64 Year
  Sex: Female
  Weight: 51 kg

DRUGS (31)
  1. REBIF [Suspect]
     Active Substance: INTERFERON BETA-1A
     Indication: Multiple sclerosis
     Dosage: BATCH NUMBER: AU029511
     Route: 058
     Dates: start: 20140603
  2. CYCLOBENZAPRINE [Concomitant]
     Active Substance: CYCLOBENZAPRINE
     Indication: Product used for unknown indication
     Dosage: WHEN NECESSARY
     Route: 048
  3. LORATADINE [Concomitant]
     Active Substance: LORATADINE
     Indication: Product used for unknown indication
     Dosage: WHEN NECESSARY
     Route: 048
  4. ADVAIR HFA [Concomitant]
     Active Substance: FLUTICASONE PROPIONATE\SALMETEROL XINAFOATE
     Indication: Product used for unknown indication
     Dosage: 250-50 MICROGRAM, 1 PUFF USING INHALER POWDER
     Route: 055
  5. ALBUTEROL [Concomitant]
     Active Substance: ALBUTEROL
     Indication: Product used for unknown indication
     Dosage: INHALER, TWO PUFF
     Route: 055
  6. CETIRIZINE HYDROCHLORIDE [Concomitant]
     Active Substance: CETIRIZINE HYDROCHLORIDE
     Indication: Product used for unknown indication
     Route: 048
  7. COLACE [Concomitant]
     Active Substance: DOCUSATE SODIUM
     Indication: Product used for unknown indication
     Route: 048
  8. VITAMIN C [Concomitant]
     Active Substance: ASCORBIC ACID
     Indication: Product used for unknown indication
     Route: 048
  9. ELAVIL [Concomitant]
     Active Substance: AMITRIPTYLINE HYDROCHLORIDE
     Indication: Product used for unknown indication
     Dosage: AT BEDTIME
     Route: 048
  10. MYRBETRIQ [Concomitant]
     Active Substance: MIRABEGRON
     Indication: Neurogenic bladder
     Dosage: ONE TABLET EVERYDAY, FOUR REFILLS
     Route: 048
  11. LASIX [Concomitant]
     Active Substance: FUROSEMIDE
     Indication: Neurogenic bladder
     Dosage: 6 REFILLS, ONE TABLET EVERYDAY
     Route: 048
  12. CAPTOPRIL [Concomitant]
     Active Substance: CAPTOPRIL
     Indication: Product used for unknown indication
     Route: 048
  13. VESICARE [Concomitant]
     Active Substance: SOLIFENACIN SUCCINATE
     Indication: Hypertonic bladder
  14. VESICARE [Concomitant]
     Active Substance: SOLIFENACIN SUCCINATE
  15. GLIPIZIDE XL [Concomitant]
     Active Substance: GLIPIZIDE
     Indication: Product used for unknown indication
     Dosage: EXTENDED RELEASE TABLET, 5 MILLIGRAMS IS EQUAL TO ONE TABLET
     Route: 048
  16. SENNA LEAF [Concomitant]
     Active Substance: SENNA LEAF
     Indication: Product used for unknown indication
     Dosage: 17.2 MG IS EQUAL TO TWO TABLETS, QHS
     Route: 048
  17. ASPIRIN [Concomitant]
     Active Substance: ASPIRIN
     Indication: Product used for unknown indication
     Dosage: DELAYED RELEASE
     Route: 048
  18. CYANOCOBALAMIN [Concomitant]
     Active Substance: CYANOCOBALAMIN
     Indication: Product used for unknown indication
     Dosage: 500 MICROGRAMS IS EQUAL TO ONE TABLET
     Route: 048
  19. VITAMIN D3 [Concomitant]
     Active Substance: CHOLECALCIFEROL
     Indication: Product used for unknown indication
     Dosage: EVERY DAY
     Route: 048
  20. PROVENTIL HFA [SALBUTAMOL] [Concomitant]
     Indication: Product used for unknown indication
     Dosage: 90 MICROGRAM PER INHALATION WHEN NECESSARY FROM INHALER, 2 PUFF
     Route: 055
  21. IBUPROFEN [Concomitant]
     Active Substance: IBUPROFEN
     Indication: Product used for unknown indication
     Route: 048
  22. FERROUS SULFATE [Concomitant]
     Active Substance: FERROUS SULFATE
     Indication: Product used for unknown indication
     Route: 048
  23. LOVASTATIN [Concomitant]
     Active Substance: LOVASTATIN
     Indication: Product used for unknown indication
     Route: 048
  24. PANTOPRAZOLE [Concomitant]
     Active Substance: PANTOPRAZOLE
     Indication: Product used for unknown indication
     Dosage: DELAYED RELEASE TABLET, FOUR REFILLS
     Route: 048
  25. FEXOFENADINE [Concomitant]
     Active Substance: FEXOFENADINE HYDROCHLORIDE
     Indication: Product used for unknown indication
     Dosage: 180 MILLIGRAM IS EQUAL TO 1 TABLET, EVERYDAY
     Route: 048
  26. HYDRALAZINE [Concomitant]
     Active Substance: HYDRALAZINE HYDROCHLORIDE
     Indication: Product used for unknown indication
     Dosage: 25 MILLIGRAM IS EQUAL TO ONE TABLET
     Route: 048
  27. AMLODIPINE BESYLATE [Concomitant]
     Active Substance: AMLODIPINE BESYLATE
     Indication: Product used for unknown indication
     Dosage: 5 MILLIGRAM IS EQUAL TO ONE TABLET
     Route: 048
  28. FLUTICASONE [Concomitant]
     Active Substance: FLUTICASONE
     Indication: Product used for unknown indication
     Dosage: ONE INHALER SPRAY
     Route: 045
  29. METFORMIN [Concomitant]
     Active Substance: METFORMIN HYDROCHLORIDE
     Indication: Product used for unknown indication
     Route: 048
  30. OMEPRAZOLE [Concomitant]
     Active Substance: OMEPRAZOLE
     Indication: Product used for unknown indication
     Dosage: 2 CAPSULES EVERY DAY
     Route: 048
  31. SPIRONOLACTONE [Concomitant]
     Active Substance: SPIRONOLACTONE
     Indication: Product used for unknown indication
     Route: 048

REACTIONS (7)
  - Multiple sclerosis [Recovering/Resolving]
  - Neurogenic bladder [Recovering/Resolving]
  - Nephrolithiasis [Unknown]
  - Gait disturbance [Unknown]
  - Arthritis [Unknown]
  - Bladder trabeculation [Unknown]
  - Neurogenic bowel [Unknown]
